FAERS Safety Report 6207035-7 (Version None)
Quarter: 2009Q2

REPORT INFORMATION
  Report Type: 
  Country: None (occurrence: None)
  Receive Date: 20090528
  Receipt Date: 20090519
  Transmission Date: 20091009
  Serious: Yes (Death, Other)
  Sender: FDA-Public Use
  Company Number: HQWYE590926AUG04

PATIENT
  Sex: Female
  Weight: 122.58 kg

DRUGS (11)
  1. PREMPRO [Suspect]
     Indication: HORMONE REPLACEMENT THERAPY
     Dosage: UNKNOWN
     Route: 048
     Dates: start: 19970101, end: 19990101
  2. PREMPRO [Suspect]
     Indication: MENOPAUSE
  3. SINGULAIR [Concomitant]
     Indication: ASTHMA
     Dosage: UNKNOWN
     Dates: start: 19980101, end: 20040101
  4. CLARITIN-D [Concomitant]
     Indication: HYPERSENSITIVITY
     Dosage: UNKNOWN
     Dates: start: 19980101, end: 20030101
  5. PREDNISONE [Concomitant]
     Indication: ASTHMA
     Dosage: UNKNOWN
     Dates: start: 19980101, end: 20030101
  6. FLOVENT [Concomitant]
     Indication: ASTHMA
     Dosage: UNKNOWN
     Dates: start: 19990101, end: 20000101
  7. PROVENTIL [Concomitant]
     Indication: ASTHMA
     Dosage: UNKNOWN
     Dates: start: 19990101, end: 19990101
  8. VANCENASE [Concomitant]
     Indication: ASTHMA
     Dosage: UNKNOWN
     Dates: start: 19980101, end: 19990101
  9. HYDROCHLOROTHIAZIDE [Concomitant]
     Indication: HYPERTENSION
     Dosage: UNKNOWN
     Dates: start: 19940101
  10. LOTENSIN [Concomitant]
     Indication: HYPERTENSION
     Dosage: UNKNOWN
     Dates: start: 19980101, end: 19990101
  11. SEREVENT [Concomitant]
     Indication: ASTHMA
     Dosage: UNKNOWN
     Dates: start: 19990101, end: 19990101

REACTIONS (2)
  - PULMONARY EMBOLISM [None]
  - THROMBOSIS [None]
